FAERS Safety Report 9380268 (Version 1)
Quarter: 2013Q3

REPORT INFORMATION
  Report Type: Spontaneous
  Country: JP (occurrence: JP)
  Receive Date: 20130702
  Receipt Date: 20130702
  Transmission Date: 20140515
  Serious: Yes (Hospitalization)
  Sender: FDA-Public Use
  Company Number: JP-EISAI INC-E3810-06510-SPO-JP

PATIENT
  Age: 72 Year
  Sex: Female

DRUGS (3)
  1. ACIPHEX (RABEPRAZOLE) [Suspect]
     Dosage: UNKNOWN
     Route: 048
  2. TICLOPIDINE HYDROCHLORIDE [Concomitant]
     Indication: CORONARY ARTERIAL STENT INSERTION
     Route: 048
  3. ASPIRIN [Concomitant]
     Indication: CORONARY ARTERIAL STENT INSERTION
     Route: 048

REACTIONS (1)
  - Colitis microscopic [Recovered/Resolved]
